FAERS Safety Report 5207359-6 (Version None)
Quarter: 2007Q1

REPORT INFORMATION
  Report Type: 
  Country: None (occurrence: None)
  Receive Date: 20070112
  Receipt Date: 20070102
  Transmission Date: 20070707
  Serious: Yes (Death, Hospitalization)
  Sender: FDA-Public Use
  Company Number: US-ROCHE-476815

PATIENT
  Age: 65 Year
  Sex: Male

DRUGS (6)
  1. XELODA [Suspect]
     Dosage: ONCE STARTED, THE PATIENT TOOK XELODA CONTINOUSLY ON THROUGH THE SECOND CYCLE.
     Route: 065
     Dates: start: 20061116
  2. AVASTIN [Suspect]
     Dosage: CYCLE 1
     Route: 065
     Dates: start: 20061116
  3. AVASTIN [Suspect]
     Dosage: CYCLE 2
     Route: 065
     Dates: start: 20061207
  4. OXALIPLATIN [Suspect]
     Dosage: CYCLE 1
     Route: 065
     Dates: start: 20061116
  5. OXALIPLATIN [Suspect]
     Dosage: CYCLE 2
     Route: 065
     Dates: start: 20061207
  6. ZOCOR [Suspect]
     Indication: DRUG USE FOR UNKNOWN INDICATION
     Dosage: THE PATIENT HAD BEEN TAKING ZOCOR FOR 4 YEARS.
     Route: 065
     Dates: start: 20030115

REACTIONS (9)
  - CARDIAC ARREST [None]
  - HEPATITIS [None]
  - INTESTINAL ISCHAEMIA [None]
  - LARGE INTESTINE PERFORATION [None]
  - MUCOSAL INFLAMMATION [None]
  - RHABDOMYOLYSIS [None]
  - SHOCK [None]
  - STOMATITIS [None]
  - TRANSAMINASES INCREASED [None]
